FAERS Safety Report 10228483 (Version 3)
Quarter: 2014Q3

REPORT INFORMATION
  Report Type: Spontaneous
  Country: US (occurrence: US)
  Receive Date: 20140610
  Receipt Date: 20140903
  Transmission Date: 20150326
  Serious: Yes (Hospitalization)
  Sender: FDA-Public Use
  Company Number: US-BAYER-2014-084598

PATIENT
  Age: 19 Year
  Sex: Female
  Weight: 91 kg

DRUGS (3)
  1. IBUPROFEN. [Concomitant]
     Active Substance: IBUPROFEN
  2. OCELLA [Suspect]
     Active Substance: DROSPIRENONE\ETHINYL ESTRADIOL
     Dosage: UNK
     Dates: start: 2010
  3. MOTRIN [Concomitant]
     Active Substance: IBUPROFEN

REACTIONS (5)
  - Deep vein thrombosis [None]
  - Injury [None]
  - General physical health deterioration [None]
  - Emotional distress [None]
  - Pain [None]

NARRATIVE: CASE EVENT DATE: 20101009
